FAERS Safety Report 7652571-X (Version None)
Quarter: 2011Q3

REPORT INFORMATION
  Report Type: 
  Country: None (occurrence: None)
  Receive Date: 20110728
  Receipt Date: 20110712
  Transmission Date: 20111222
  Serious: Yes (Other)
  Sender: FDA-Public Use
  Company Number: AUR-APU-2011-03712

PATIENT
  Sex: Female

DRUGS (1)
  1. CIPROFLOXACIN [Suspect]
     Indication: URINARY TRACT INFECTION
     Dates: start: 20110617, end: 20110621

REACTIONS (4)
  - OEDEMA PERIPHERAL [None]
  - JOINT SWELLING [None]
  - PAIN [None]
  - GAIT DISTURBANCE [None]
